FAERS Safety Report 5703009-0 (Version None)
Quarter: 2008Q2

REPORT INFORMATION
  Report Type: 
  Country: None (occurrence: None)
  Receive Date: 20080408
  Receipt Date: 20080325
  Transmission Date: 20081010
  Serious: Yes (Other)
  Sender: FDA-Public Use
  Company Number: 2008S1005093

PATIENT
  Age: 59 Year
  Sex: Female
  Weight: 87 kg

DRUGS (5)
  1. PROMETRIUM [Suspect]
     Indication: HORMONE REPLACEMENT THERAPY
     Dosage: 100 MG;DAILY;ORAL
     Route: 048
  2. METHOTREXATE [Suspect]
     Indication: CONNECTIVE TISSUE DISORDER
     Dates: start: 20070716, end: 20070813
  3. PREDNISONE TAB [Suspect]
     Indication: CONNECTIVE TISSUE DISORDER
     Dosage: 10 MG;DAILY;ORAL : 10 MG;DAILY;ORAL
     Route: 048
     Dates: start: 20070601, end: 20070601
  4. PREDNISONE TAB [Suspect]
     Indication: CONNECTIVE TISSUE DISORDER
     Dosage: 10 MG;DAILY;ORAL : 10 MG;DAILY;ORAL
     Route: 048
     Dates: start: 20070711, end: 20071001
  5. ESTRADIOL [Suspect]
     Indication: HORMONE REPLACEMENT THERAPY
     Dosage: 2 MG;DAILY;ORAL
     Route: 048
     Dates: start: 20000101

REACTIONS (5)
  - ALOPECIA [None]
  - CONNECTIVE TISSUE DISORDER [None]
  - NASOPHARYNGITIS [None]
  - OEDEMA PERIPHERAL [None]
  - PAIN IN EXTREMITY [None]
